FAERS Safety Report 5018176-4 (Version None)
Quarter: 2006Q2

REPORT INFORMATION
  Report Type: 
  Country: None (occurrence: None)
  Receive Date: 20060530
  Receipt Date: 20050221
  Transmission Date: 20061013
  Serious: Yes (Hospitalization)
  Sender: FDA-Public Use
  Company Number: 2004086987

PATIENT
  Age: 74 Year
  Sex: Female
  Weight: 56 kg

DRUGS (15)
  1. LYRICA [Suspect]
     Indication: BACK PAIN
     Dosage: (75 MG, 1 IN 1 D), ORAL
     Route: 048
     Dates: start: 20040906, end: 20041004
  2. ALENDRONIC ACID (ALENDRONIC ACID) [Concomitant]
  3. LACTULOSE [Concomitant]
  4. BENDROFLUMETHIAZIDE (BENDROFLUMETHIAZIDE) [Concomitant]
  5. ACETAMINOPHEN [Concomitant]
  6. DIHYDROCODEINE (DIHYDROCODEINE) [Concomitant]
  7. ATENOLOL [Concomitant]
  8. RAMIPRIL [Concomitant]
  9. DOXAZOSIN (DOXAZOSIN) [Concomitant]
  10. ASPIRIN [Concomitant]
  11. CLOPIDOGREL (CLOPIDOGREL) [Concomitant]
  12. SIMVASTATIN [Concomitant]
  13. ZOPICLONE (ZOPICLONE) [Concomitant]
  14. LANSOPRAZOLE [Concomitant]
  15. FLUOXETINE [Concomitant]

REACTIONS (3)
  - ABDOMINAL HAEMATOMA [None]
  - INCREASED TENDENCY TO BRUISE [None]
  - MUSCLE HAEMORRHAGE [None]
